FAERS Safety Report 17661025 (Version 1)
Quarter: 2020Q2

REPORT INFORMATION
  Report Type: Spontaneous
  Country: FR (occurrence: FR)
  Receive Date: 20200413
  Receipt Date: 20200413
  Transmission Date: 20200713
  Serious: Yes (Life-Threatening)
  Sender: FDA-Public Use
  Company Number: FR-BAXTER-2020BAX007609

PATIENT
  Age: 43 Year
  Sex: Male
  Weight: 67 kg

DRUGS (3)
  1. METHYLPREDNISOLONE MYLAN [Suspect]
     Active Substance: METHYLPREDNISOLONE
     Indication: POLYARTERITIS NODOSA
     Route: 042
     Dates: start: 20200317, end: 20200319
  2. ENDOXAN 1000 MG, POUDRE POUR SOLUTIONINJECTABLE [Suspect]
     Active Substance: CYCLOPHOSPHAMIDE
     Indication: POLYARTERITIS NODOSA
     Route: 041
     Dates: start: 20200319, end: 20200319
  3. PREDNISONE ARROW [Suspect]
     Active Substance: PREDNISONE
     Indication: POLYARTERITIS NODOSA
     Route: 048
     Dates: start: 2018

REACTIONS (2)
  - Interstitial lung disease [Recovering/Resolving]
  - Condition aggravated [Recovering/Resolving]

NARRATIVE: CASE EVENT DATE: 20200325
